FAERS Safety Report 9921863 (Version 2)
Quarter: 2014Q1

REPORT INFORMATION
  Report Type: Spontaneous
  Country: IT (occurrence: IT)
  Receive Date: 20140225
  Receipt Date: 20140305
  Transmission Date: 20141002
  Serious: Yes (Other)
  Sender: FDA-Public Use
  Company Number: IT-BRISTOL-MYERS SQUIBB COMPANY-20305181

PATIENT
  Age: 67 Year
  Sex: Male

DRUGS (2)
  1. ERBITUX SOLN FOR INF 5MG/ML [Suspect]
     Indication: LARYNGEAL CANCER
     Dosage: 1DF:5MG/ML(375MG,CYCLIC - 08-AUG-2013 - 26-SEP-2013)
     Route: 042
     Dates: start: 20130808, end: 20130926
  2. CARBOPLATINE TEVA [Suspect]
     Indication: LARYNGEAL CANCER
     Dosage: 1DF:10MG/ML;370 MG, CYCLICAL;08-AUG-2013 - 26-SEP-2013
     Route: 042
     Dates: start: 20130808, end: 20130926

REACTIONS (1)
  - Petechiae [Recovered/Resolved]
